FAERS Safety Report 20356295 (Version 1)
Quarter: 2022Q1

REPORT INFORMATION
  Report Type: Spontaneous
  Country: US (occurrence: US)
  Receive Date: 20220120
  Receipt Date: 20220120
  Transmission Date: 20220423
  Serious: Yes (Other)
  Sender: FDA-Public Use
  Company Number: US-BAYER-2022A005691

PATIENT
  Age: 23 Year
  Sex: Male

DRUGS (2)
  1. JIVI [Suspect]
     Active Substance: DAMOCTOCOG ALFA PEGOL
     Dosage: 2310 U, BIW
  2. JIVI [Suspect]
     Active Substance: DAMOCTOCOG ALFA PEGOL
     Dosage: TREATED  BLEEDS (ONE DOSE)

REACTIONS (4)
  - Haemorrhage [Recovered/Resolved]
  - Accident [None]
  - Joint injury [None]
  - Limb injury [None]

NARRATIVE: CASE EVENT DATE: 20220101
